FAERS Safety Report 17229668 (Version 1)
Quarter: 2020Q1

REPORT INFORMATION
  Report Type: Spontaneous
  Country: US (occurrence: US)
  Receive Date: 20200103
  Receipt Date: 20200103
  Transmission Date: 20200409
  Serious: Yes (Hospitalization, Other)
  Sender: FDA-Public Use
  Company Number: US-PFIZER INC-2019561933

PATIENT
  Age: 73 Year
  Sex: Male

DRUGS (1)
  1. VYNDAQEL [Suspect]
     Active Substance: TAFAMIDIS MEGLUMINE
     Dosage: UNK
     Dates: start: 201911

REACTIONS (5)
  - Respiratory failure [Unknown]
  - Blood pressure abnormal [Unknown]
  - Acidosis [Unknown]
  - Hyperkalaemia [Unknown]
  - Renal impairment [Unknown]
